FAERS Safety Report 17551327 (Version 1)
Quarter: 2020Q1

REPORT INFORMATION
  Report Type: Spontaneous
  Country: GB (occurrence: GB)
  Receive Date: 20200317
  Receipt Date: 20200317
  Transmission Date: 20200409
  Serious: Yes (Other)
  Sender: FDA-Public Use
  Company Number: GB-ACCORD-175399

PATIENT
  Age: 19 Month
  Sex: Male
  Weight: 33 kg

DRUGS (2)
  1. MONTELUKAST [Suspect]
     Active Substance: MONTELUKAST SODIUM
     Indication: ASTHMA
     Route: 048
     Dates: start: 20200110, end: 20200221
  2. VENTOLIN [Concomitant]
     Active Substance: ALBUTEROL SULFATE

REACTIONS (6)
  - Mood swings [Recovering/Resolving]
  - Anxiety [Unknown]
  - Sleep disorder [Recovering/Resolving]
  - Psychomotor hyperactivity [Recovered/Resolved]
  - Nightmare [Recovering/Resolving]
  - Aggression [Recovering/Resolving]

NARRATIVE: CASE EVENT DATE: 20200110
